FAERS Safety Report 6833643 (Version 2)
Quarter: 2020Q3

REPORT INFORMATION
  Report Type: Report from Study
  Country: US (occurrence: US)
  Receive Date: 20081205
  Receipt Date: 20090430
  Transmission Date: 20201104
  Serious: Yes (Other)
  Sender: FDA-Public Use
  Company Number: US-ROCHE-598891

PATIENT
  Age: 52 Year
  Sex: Female

DRUGS (4)
  1. PHENERGAN [Concomitant]
     Active Substance: PROMETHAZINE HYDROCHLORIDE
  2. ATIVAN [Concomitant]
     Active Substance: LORAZEPAM
  3. CARAFATE [Concomitant]
     Active Substance: SUCRALFATE
  4. IBANDRONIC ACID. [Suspect]
     Active Substance: IBANDRONIC ACID
     Indication: OSTEOPOROSIS
     Dosage: FORM: PRE?FILLED SYRINGE
     Route: 065
     Dates: start: 200809

REACTIONS (5)
  - Musculoskeletal stiffness [Unknown]
  - Chemical burn of skin [Recovered/Resolved with Sequelae]
  - Injection site extravasation [Unknown]
  - Adverse drug reaction [Unknown]
  - Burns third degree [Recovered/Resolved with Sequelae]

NARRATIVE: CASE EVENT DATE: 20080901
